FAERS Safety Report 25083039 (Version 2)
Quarter: 2025Q1

REPORT INFORMATION
  Report Type: Report from Study
  Country: US (occurrence: US)
  Receive Date: 20250317
  Receipt Date: 20250325
  Transmission Date: 20250409
  Serious: Yes (Hospitalization)
  Sender: EMD SERONO INC
  Company Number: US-Merck Healthcare KGaA-2025012383

PATIENT
  Sex: Male

DRUGS (2)
  1. REBIF [Suspect]
     Active Substance: INTERFERON BETA-1A
     Indication: Multiple sclerosis
     Dosage: REBI-JECT II
     Dates: start: 20041203
  2. REBIF [Suspect]
     Active Substance: INTERFERON BETA-1A

REACTIONS (3)
  - Diabetes mellitus [Unknown]
  - Confusional state [Unknown]
  - Product dose omission issue [Unknown]
